FAERS Safety Report 18802116 (Version 1)
Quarter: 2021Q1

REPORT INFORMATION
  Report Type: Report from Study
  Country: US (occurrence: US)
  Receive Date: 20210128
  Receipt Date: 20210128
  Transmission Date: 20210419
  Serious: Yes (Other)
  Sender: FDA-Public Use
  Company Number: US-ALXN-A202101163

PATIENT
  Age: 38 Year
  Sex: Male

DRUGS (1)
  1. ULTOMIRIS [Suspect]
     Active Substance: RAVULIZUMAB-CWVZ
     Indication: PAROXYSMAL NOCTURNAL HAEMOGLOBINURIA
     Dosage: 2700 MG, Q56
     Route: 042
     Dates: start: 20191219

REACTIONS (2)
  - Chromaturia [Unknown]
  - Headache [Unknown]

NARRATIVE: CASE EVENT DATE: 20201216
